FAERS Safety Report 11150533 (Version 4)
Quarter: 2015Q3

REPORT INFORMATION
  Report Type: Report from Study
  Country: DE (occurrence: DE)
  Receive Date: 20150601
  Receipt Date: 20150908
  Transmission Date: 20151125
  Serious: Yes (Hospitalization)
  Sender: FDA-Public Use
  Company Number: DE-BEH-2015051314

PATIENT
  Age: 61 Year
  Sex: Female
  Weight: 59 kg

DRUGS (14)
  1. CANDESARTAN [Concomitant]
     Active Substance: CANDESARTAN
  2. METOPROLOL [Concomitant]
     Active Substance: METOPROLOL
  3. PANTOPRAZOLE [Concomitant]
     Active Substance: PANTOPRAZOLE SODIUM
  4. TRAMADOLOL [Concomitant]
  5. PRIVIGEN [Suspect]
     Active Substance: HUMAN IMMUNOGLOBULIN G
     Indication: PROPHYLAXIS
     Dosage: INFUSION RATE:MIN. 0.26 ML/MIN, MAX. 3.3 ML/MIN
     Route: 042
     Dates: start: 20150429, end: 20150429
  6. SANDIMMUN [Concomitant]
     Active Substance: CYCLOSPORINE
  7. PRIVIGEN [Suspect]
     Active Substance: HUMAN IMMUNOGLOBULIN G
     Indication: PROPHYLAXIS
     Dosage: INFUSION RATE: MIN. 0.25 ML/MIN, MAX. 1.7 ML/MIN
     Route: 042
     Dates: start: 20150416, end: 20150416
  8. MYCOPHENOLATE [Concomitant]
     Active Substance: MYCOPHENOLIC ACID
  9. TAZOBACTAM [Concomitant]
     Active Substance: TAZOBACTAM
     Indication: PYREXIA
     Dates: start: 20150426, end: 20150506
  10. VANCOMYCIN [Concomitant]
     Active Substance: VANCOMYCIN
     Indication: PYREXIA
     Dates: start: 20150310, end: 20150321
  11. AMLODIPINE [Concomitant]
     Active Substance: AMLODIPINE BESYLATE
  12. MAGNESIUM [Concomitant]
     Active Substance: MAGNESIUM
  13. GLUCOCORTICOIDS [Concomitant]
     Active Substance: UNSPECIFIED INGREDIENT
  14. PRIVIGEN [Suspect]
     Active Substance: HUMAN IMMUNOGLOBULIN G
     Indication: IMMUNE THROMBOCYTOPENIC PURPURA
     Dosage: INFUSION RATE: MIN. 0.25 ML/MIN, MAX. 1.7 ML/MIN
     Dates: start: 20150416, end: 20150416

REACTIONS (14)
  - General physical health deterioration [Recovered/Resolved]
  - Vomiting [Recovered/Resolved]
  - Dyspepsia [Recovered/Resolved]
  - Cystitis [Recovered/Resolved]
  - Abdominal pain upper [Recovered/Resolved]
  - Bacteriuria [Recovered/Resolved]
  - Oesophagitis [Recovered/Resolved]
  - Haematuria [Recovered/Resolved]
  - Nausea [Recovered/Resolved]
  - Diarrhoea [Recovered/Resolved]
  - Renal failure [Recovered/Resolved]
  - Dysuria [Recovered/Resolved]
  - Dehydration [Recovered/Resolved]
  - Decreased appetite [Recovered/Resolved]

NARRATIVE: CASE EVENT DATE: 20150424
